FAERS Safety Report 11074172 (Version 3)
Quarter: 2015Q2

REPORT INFORMATION
  Report Type: Spontaneous
  Country: US (occurrence: None)
  Receive Date: 20150427
  Receipt Date: 20150507
  Transmission Date: 20150821
  Serious: Yes (Other)
  Sender: FDA-Public Use
  Company Number: ADR-2015-00807

PATIENT
  Sex: Female

DRUGS (3)
  1. COMPOUNDED BACLOFEN INTRATHECAL 0.5 MCG/ML [Suspect]
     Active Substance: BACLOFEN
     Indication: MUSCLE SPASTICITY
  2. MORPHINE INTRATHECAL 11 MG/ML [Suspect]
     Active Substance: MORPHINE
  3. CLONDIDINE INTRATHECAL 530 MCG/ML [Suspect]
     Active Substance: CLONIDINE
     Indication: MUSCLE SPASTICITY

REACTIONS (4)
  - Fall [None]
  - Hypotension [None]
  - Mental status changes [None]
  - Ankle fracture [None]

NARRATIVE: CASE EVENT DATE: 20150415
